FAERS Safety Report 5130918-6 (Version None)
Quarter: 2006Q3

REPORT INFORMATION
  Report Type: 
  Country: None (occurrence: None)
  Receive Date: 20060829
  Receipt Date: 20060619
  Transmission Date: 20061208
  Serious: No
  Sender: FDA-Public Use
  Company Number: PHEH2006US07925

PATIENT
  Age: 80 Year
  Sex: Male

DRUGS (2)
  1. EXJADE [Suspect]
     Indication: BLOOD IRON INCREASED
     Dosage: 125MG, QD, ORAL
     Route: 048
     Dates: start: 20060602, end: 20060614
  2. NORTRIPTYLINE HCL [Concomitant]

REACTIONS (3)
  - BALANCE DISORDER [None]
  - DIARRHOEA [None]
  - VISUAL DISTURBANCE [None]
